APPROVED DRUG PRODUCT: MYCOLOG-II
Active Ingredient: NYSTATIN; TRIAMCINOLONE ACETONIDE
Strength: 100,000 UNITS/GM;0.1% **Federal Register determination that product was not discontinued or withdrawn for safety or effectiveness reasons*
Dosage Form/Route: CREAM;TOPICAL
Application: A062606 | Product #001
Applicant: MYLAN PHARMACEUTICALS INC
Approved: May 15, 1985 | RLD: No | RS: No | Type: DISCN